FAERS Safety Report 24610677 (Version 2)
Quarter: 2024Q4

REPORT INFORMATION
  Report Type: Spontaneous
  Country: US (occurrence: US)
  Receive Date: 20241112
  Receipt Date: 20241220
  Transmission Date: 20250114
  Serious: No
  Sender: PHARMING GROUP
  Company Number: US-PHARMING-PHAUS2024000988

PATIENT

DRUGS (3)
  1. RUCONEST [Suspect]
     Active Substance: CONESTAT ALFA
     Indication: Hereditary angioedema
     Dosage: 3500 IU, AS NEEDED
     Route: 042
     Dates: start: 202403
  2. RUCONEST [Suspect]
     Active Substance: CONESTAT ALFA
     Dosage: 3500 IU, PRN
     Route: 042
     Dates: start: 202403
  3. TAKHZYRO [Concomitant]
     Active Substance: LANADELUMAB-FLYO
     Indication: Product used for unknown indication

REACTIONS (1)
  - Weight fluctuation [Unknown]
